FAERS Safety Report 15971278 (Version 3)
Quarter: 2019Q1

REPORT INFORMATION
  Report Type: Report from Study
  Country: DE (occurrence: DE)
  Receive Date: 20190215
  Receipt Date: 20190311
  Transmission Date: 20190418
  Serious: Yes (Other)
  Sender: FDA-Public Use
  Company Number: PHHO2019DE001802

PATIENT
  Sex: Female
  Weight: 65 kg

DRUGS (3)
  1. ABL001 [Suspect]
     Active Substance: ASCIMINIB
     Indication: CHRONIC MYELOID LEUKAEMIA
     Dosage: 60 MG, QD
     Route: 048
     Dates: start: 20171122, end: 20180607
  2. PONATINIB [Concomitant]
     Active Substance: PONATINIB
     Indication: CHRONIC MYELOID LEUKAEMIA
     Dosage: 30 MG, QD
     Route: 048
     Dates: start: 20180611, end: 20190201
  3. GLIVEC [Suspect]
     Active Substance: IMATINIB MESYLATE
     Indication: CHRONIC MYELOID LEUKAEMIA
     Dosage: 400 MG, QD
     Route: 048
     Dates: start: 20171122, end: 20180607

REACTIONS (1)
  - Peripheral ischaemia [Not Recovered/Not Resolved]

NARRATIVE: CASE EVENT DATE: 20190207
